FAERS Safety Report 21003569 (Version 1)
Quarter: 2022Q2

REPORT INFORMATION
  Report Type: Report from Study
  Country: CA (occurrence: CA)
  Receive Date: 20220624
  Receipt Date: 20220624
  Transmission Date: 20220721
  Serious: Yes (Other)
  Sender: FDA-Public Use
  Company Number: CA-PFIZER INC-202200845417

PATIENT
  Age: 9 Decade
  Sex: Female

DRUGS (1)
  1. METHOTREXATE SODIUM [Suspect]
     Active Substance: METHOTREXATE SODIUM
     Indication: Corneal epithelial downgrowth
     Dosage: 400MICROM/0.1ML, 2X/WEEK OR WEEKLY
     Route: 031

REACTIONS (1)
  - Retinal pigment epitheliopathy [Unknown]
